FAERS Safety Report 7204579-6 (Version None)
Quarter: 2010Q4

REPORT INFORMATION
  Report Type: 
  Country: None (occurrence: None)
  Receive Date: 20101230
  Receipt Date: 20101223
  Transmission Date: 20110411
  Serious: Yes (Disabling, Other)
  Sender: FDA-Public Use
  Company Number: GB-PFIZER INC-2010178952

PATIENT
  Age: 61 Year
  Sex: Male
  Weight: 68 kg

DRUGS (2)
  1. CHAMPIX [Suspect]
     Indication: SMOKING CESSATION THERAPY
     Dosage: 1 MG, 2X/DAY
     Route: 048
     Dates: start: 20100826, end: 20100929
  2. FLUOXETINE [Concomitant]
     Indication: DEPRESSION
     Dosage: 40 MG UNIT DOSE
     Route: 048
     Dates: start: 20100721

REACTIONS (2)
  - COLITIS [None]
  - DIARRHOEA [None]
